FAERS Safety Report 4337206-6 (Version None)
Quarter: 2004Q2

REPORT INFORMATION
  Report Type: 
  Country: None (occurrence: None)
  Receive Date: 20040408
  Receipt Date: 20040326
  Transmission Date: 20050107
  Serious: Yes (Death, Hospitalization)
  Sender: FDA-Public Use
  Company Number: RENA-10861

PATIENT
  Age: 72 Year
  Sex: Male

DRUGS (1)
  1. RENAGEL [Suspect]
     Indication: HYPERPHOSPHATAEMIA
     Dosage: 6 G QD PO
     Route: 048
     Dates: end: 20040110

REACTIONS (5)
  - CEREBRAL INFARCTION [None]
  - ENTEROCOLITIS [None]
  - HYPOXIC ENCEPHALOPATHY [None]
  - INTESTINAL HAEMORRHAGE [None]
  - PYREXIA [None]
